FAERS Safety Report 20685263 (Version 1)
Quarter: 2022Q2

REPORT INFORMATION
  Report Type: Spontaneous
  Country: US (occurrence: US)
  Receive Date: 20220407
  Receipt Date: 20220407
  Transmission Date: 20220720
  Serious: No
  Sender: FDA-Public Use
  Company Number: US-KARYOPHARM-2022KPT000368

PATIENT

DRUGS (3)
  1. XPOVIO [Suspect]
     Active Substance: SELINEXOR
     Indication: Product used for unknown indication
     Dosage: 60 MG, WEEKLY
     Route: 048
     Dates: start: 20220315
  2. OLANZAPINE [Concomitant]
     Active Substance: OLANZAPINE
  3. DULCOLAX (BISACODYL) [Concomitant]
     Active Substance: BISACODYL
     Indication: Constipation

REACTIONS (5)
  - Emotional disorder [Recovering/Resolving]
  - Somnolence [Unknown]
  - Nausea [Unknown]
  - Fatigue [Unknown]
  - Dizziness [Unknown]

NARRATIVE: CASE EVENT DATE: 20220301
